FAERS Safety Report 24389523 (Version 2)
Quarter: 2025Q2

REPORT INFORMATION
  Report Type: Spontaneous
  Country: NL (occurrence: NL)
  Receive Date: 20241003
  Receipt Date: 20250521
  Transmission Date: 20250717
  Serious: Yes (Other)
  Sender: GLAXOSMITHKLINE
  Company Number: NL-GLAXOSMITHKLINE-NL2024EME119585

PATIENT

DRUGS (1)
  1. DOSTARLIMAB [Suspect]
     Active Substance: DOSTARLIMAB
     Indication: Rectal cancer
     Dosage: 500 MG, Q3W, 50 MG/ML 10 ML, 6 CYCLE
     Dates: end: 20250115

REACTIONS (2)
  - Malignant neoplasm progression [Unknown]
  - Off label use [Unknown]
